FAERS Safety Report 18757240 (Version 8)
Quarter: 2021Q3

REPORT INFORMATION
  Report Type: Spontaneous
  Country: US (occurrence: US)
  Receive Date: 20210119
  Receipt Date: 20210731
  Transmission Date: 20211014
  Serious: Yes (Other)
  Sender: FDA-Public Use
  Company Number: US-AMGEN-USASP2021006253

PATIENT
  Age: 65 Year
  Sex: Female

DRUGS (37)
  1. METFORMIN [Concomitant]
     Active Substance: METFORMIN HYDROCHLORIDE
     Dosage: 500 MILLIGRAM, QD
  2. FUROSEMIDE. [Concomitant]
     Active Substance: FUROSEMIDE
     Dosage: 20 MILLIGRAM, QD
  3. MULTI VIT [Concomitant]
     Active Substance: VITAMINS
     Dosage: UNK UNK, QD
  4. AMOXICILLIN [AMOXICILLIN TRIHYDRATE;CLAVULANATE POTASSIUM] [Concomitant]
     Dosage: 875/125 MILLIGRAM
  5. LORAZEPAM. [Concomitant]
     Active Substance: LORAZEPAM
     Dosage: 0.5 MILLIGRAM
  6. PROBIOTICS [BIFIDOBACTERIUM LONGUM;LACTOBACILLUS ACIDOPHILUS;LACTOBACI [Concomitant]
     Dosage: UNK
  7. VENLAFAXINE [Concomitant]
     Active Substance: VENLAFAXINE HYDROCHLORIDE
     Dosage: 75 MILLIGRAM, QD
  8. FENOFIBRATE. [Concomitant]
     Active Substance: FENOFIBRATE
     Indication: LIPIDS
     Dosage: 160 MILLIGRAM, QD
  9. GABAPENTINE [Concomitant]
     Active Substance: GABAPENTIN
     Dosage: 300 MILLIGRAM, BID
     Route: 048
     Dates: start: 20201202
  10. LIDOCAINE. [Concomitant]
     Active Substance: LIDOCAINE
     Indication: BACK PAIN
     Dosage: 5 PERCENT, QD (FOR 12 HRS THEN REMOVE FOR 12 AT LEAST HRS)
     Route: 061
  11. METOPROLOL SUCCINATE. [Concomitant]
     Active Substance: METOPROLOL SUCCINATE
     Dosage: 50 MILLIGRAM, QD
  12. ROPINIROLE. [Concomitant]
     Active Substance: ROPINIROLE
     Dosage: 1 MILLIGRAM, BID
  13. CALCIUM [Concomitant]
     Active Substance: CALCIUM
     Dosage: UNK
  14. VITAMIN B12 [Concomitant]
     Active Substance: CYANOCOBALAMIN
  15. PROLIA [Suspect]
     Active Substance: DENOSUMAB
     Indication: OSTEOPOROSIS POSTMENOPAUSAL
     Dosage: 60 MILLIGRAM, Q6MO
     Route: 058
     Dates: start: 201806
  16. ONDANSETRON HCL [Concomitant]
     Active Substance: ONDANSETRON HYDROCHLORIDE
     Dosage: 4 MILLIGRAM
  17. VITAMIN D [ERGOCALCIFEROL] [Concomitant]
     Active Substance: ERGOCALCIFEROL
     Dosage: 5000 INTERNATIONAL UNIT, QWK
  18. VOLTAREN [Concomitant]
     Active Substance: DICLOFENAC SODIUM
     Dosage: UNK UNK, QID
     Route: 061
  19. VITAMIN D [ERGOCALCIFEROL] [Concomitant]
     Active Substance: ERGOCALCIFEROL
  20. FAMOTIDINE. [Concomitant]
     Active Substance: FAMOTIDINE
  21. LIDOCAINE. [Concomitant]
     Active Substance: LIDOCAINE
     Indication: ARTHRALGIA
  22. BENZONATATE. [Concomitant]
     Active Substance: BENZONATATE
     Dosage: 100 MILLIGRAM
  23. CYCLOBENZAPRINE. [Concomitant]
     Active Substance: CYCLOBENZAPRINE
     Dosage: 5 MILLIGRAM, QD
  24. JANUVIA [Concomitant]
     Active Substance: SITAGLIPTIN PHOSPHATE
     Dosage: 100 MILLIGRAM, QD
     Route: 048
  25. PIOGLITAZONE. [Concomitant]
     Active Substance: PIOGLITAZONE
     Dosage: 30 MILLIGRAM
  26. PRAVASTATIN. [Concomitant]
     Active Substance: PRAVASTATIN
     Dosage: 40 MILLIGRAM, QD
  27. RANITIDINE. [Concomitant]
     Active Substance: RANITIDINE
     Dosage: 150 MILLIGRAM, BID
     Route: 048
  28. VITAMIN C [Concomitant]
     Active Substance: ASCORBIC ACID
  29. QUNOL LIQUID COQ10 [Concomitant]
  30. ALBUTEROL HFA [Concomitant]
     Active Substance: ALBUTEROL SULFATE
     Dosage: 90 MICROGRAM
  31. LEVOTHYROXINE. [Concomitant]
     Active Substance: LEVOTHYROXINE
     Dosage: 25 MICROGRAM, QD
  32. OXYCODONE [Concomitant]
     Active Substance: OXYCODONE
     Dosage: 5 MILLIGRAM
  33. FOLIC ACID. [Concomitant]
     Active Substance: FOLIC ACID
     Dosage: 400 MILLIGRAM, QD
  34. BYSTOLIC [Concomitant]
     Active Substance: NEBIVOLOL HYDROCHLORIDE
     Dosage: UNK
  35. TRAMADOL. [Concomitant]
     Active Substance: TRAMADOL
     Dosage: 50 MILLIGRAM
  36. LOSARTAN POTASSIUM. [Concomitant]
     Active Substance: LOSARTAN POTASSIUM
     Dosage: 100 MILLIGRAM, QD
  37. MAGNESIUM [Concomitant]
     Active Substance: MAGNESIUM

REACTIONS (26)
  - Gallbladder disorder [Unknown]
  - Arthropathy [Unknown]
  - Neuritis [Unknown]
  - Intervertebral disc protrusion [Unknown]
  - Intervertebral disc degeneration [Unknown]
  - Hernia repair [Unknown]
  - Swelling [Not Recovered/Not Resolved]
  - Post-traumatic stress disorder [Unknown]
  - Neck pain [Unknown]
  - Fall [Unknown]
  - Osteonecrosis of jaw [Not Recovered/Not Resolved]
  - Endodontic procedure [Unknown]
  - Gait disturbance [Unknown]
  - Contusion [Unknown]
  - Back pain [Unknown]
  - Arthralgia [Unknown]
  - Osteoarthritis [Unknown]
  - Temporomandibular joint syndrome [Not Recovered/Not Resolved]
  - Oropharyngeal pain [Not Recovered/Not Resolved]
  - Soft tissue injury [Unknown]
  - Headache [Unknown]
  - Tooth fracture [Unknown]
  - Myofascial pain syndrome [Unknown]
  - Carpal tunnel syndrome [Unknown]
  - Weight decreased [Unknown]
  - Alopecia [Not Recovered/Not Resolved]

NARRATIVE: CASE EVENT DATE: 201806
